FAERS Safety Report 4546923-4 (Version None)
Quarter: 2005Q1

REPORT INFORMATION
  Report Type: 
  Country: None (occurrence: None)
  Receive Date: 20050105
  Receipt Date: 20041223
  Transmission Date: 20050727
  Serious: Yes (Hospitalization)
  Sender: FDA-Public Use
  Company Number: WAES 0307GBR00186

PATIENT
  Age: 71 Year
  Sex: Male

DRUGS (21)
  1. COZAAR [Suspect]
     Indication: CARDIAC FAILURE CONGESTIVE
     Dosage: PO
     Route: 048
     Dates: start: 20030424, end: 20030814
  2. COZAAR [Suspect]
     Indication: CARDIAC FAILURE CONGESTIVE
     Dosage: PO
     Route: 048
     Dates: start: 20030820
  3. PROSCAR [Concomitant]
  4. ACETAMINOPHEN AND CODEINE PHOSPHATE [Concomitant]
  5. ALUMINUM HYDROXIDE/MG TRISILICATE [Concomitant]
  6. AMLODIPINE BESYLATE [Concomitant]
  7. ATENOLOL [Concomitant]
  8. ATORVASTATIN CALCIUM [Concomitant]
  9. CLOPIDOGREL BISULFATE [Concomitant]
  10. DANTHRON/DOCUSATE [Concomitant]
  11. DIAZEPAM [Concomitant]
  12. DIMETHICONE (+) HYDROTALCITE [Concomitant]
  13. FERROUSSO4 [Concomitant]
  14. FUROSEMIDE [Concomitant]
  15. GLICLAZIDE [Concomitant]
  16. ISOSORBIDE MONONITRATE [Concomitant]
  17. LACTULOSE [Concomitant]
  18. NICORANDIL [Concomitant]
  19. NITROGLYCERIN [Concomitant]
  20. OMEPRAZOLE [Concomitant]
  21. SPIRONOLACTONE [Concomitant]

REACTIONS (21)
  - ABDOMINAL PAIN [None]
  - ABDOMINAL TENDERNESS [None]
  - ANAEMIA [None]
  - BASOPHIL COUNT DECREASED [None]
  - BLOOD ALBUMIN DECREASED [None]
  - BLOOD CHOLESTEROL DECREASED [None]
  - BLOOD UREA INCREASED [None]
  - BLOOD URIC ACID INCREASED [None]
  - CHEST PAIN [None]
  - DIZZINESS [None]
  - DYSPEPSIA [None]
  - DYSPNOEA [None]
  - FAECES DISCOLOURED [None]
  - FEELING ABNORMAL [None]
  - GASTRIC ANTRAL VASCULAR ECTASIA [None]
  - GASTROINTESTINAL DISORDER [None]
  - MEAN CELL HAEMOGLOBIN INCREASED [None]
  - MEAN CELL VOLUME INCREASED [None]
  - MEDICATION ERROR [None]
  - PURPURA [None]
  - RECTAL HAEMORRHAGE [None]
